FAERS Safety Report 24706099 (Version 1)
Quarter: 2024Q4

REPORT INFORMATION
  Report Type: Spontaneous
  Country: US (occurrence: US)
  Receive Date: 20241206
  Receipt Date: 20241206
  Transmission Date: 20250115
  Serious: Yes (Other)
  Sender: HIKMA
  Company Number: US-HIKMA PHARMACEUTICALS USA INC.-US-H14001-24-11236

PATIENT
  Sex: Female

DRUGS (3)
  1. AMIKACIN SULFATE [Suspect]
     Active Substance: AMIKACIN SULFATE
     Indication: Mycobacterium avium complex infection
     Dosage: UNKNOWN
     Route: 042
  2. CLARITHROMYCIN [Suspect]
     Active Substance: CLARITHROMYCIN
     Indication: Mycobacterium avium complex infection
     Dosage: UNK
     Route: 048
  3. IMIPENEM [Suspect]
     Active Substance: IMIPENEM
     Indication: Mycobacterium avium complex infection
     Dosage: UNK
     Route: 042

REACTIONS (1)
  - Pathogen resistance [Unknown]
